FAERS Safety Report 5280060-9 (Version None)
Quarter: 2007Q1

REPORT INFORMATION
  Report Type: 
  Country: None (occurrence: None)
  Receive Date: 20061229
  Receipt Date: 20061023
  Transmission Date: 20070707
  Serious: Yes (Other)
  Sender: FDA-Public Use
  Company Number: 2006UW20389

PATIENT
  Age: 82 Year
  Sex: Female
  Weight: 67.131 kg

DRUGS (3)
  1. CRESTOR [Suspect]
     Dosage: 10 MG PO
     Route: 048
     Dates: start: 20061001
  2. DIOVAN [Concomitant]
  3. HYDROCHLOROTHIAZIDE [Concomitant]

REACTIONS (4)
  - PAIN IN EXTREMITY [None]
  - POLLAKIURIA [None]
  - PRURITUS [None]
  - URTICARIA [None]
